FAERS Safety Report 6615277-1 (Version None)
Quarter: 2010Q1

REPORT INFORMATION
  Report Type: 
  Country: None (occurrence: None)
  Receive Date: 20100301
  Receipt Date: 20100218
  Transmission Date: 20100710
  Serious: Yes (Death)
  Sender: FDA-Public Use
  Company Number: 008906

PATIENT
  Age: 54 Year
  Sex: Male

DRUGS (8)
  1. SAMSCA [Suspect]
     Indication: HYPONATRAEMIA
     Dosage: 15 MG,QD ORAL
     Route: 048
     Dates: start: 20091009, end: 20091101
  2. OXICODINE [Concomitant]
  3. CORTICOSTEROIDS [Concomitant]
  4. LAXATIVES [Concomitant]
  5. OXYGEN (OXYGEN) [Concomitant]
  6. ANTIDEPRESSANTS [Concomitant]
  7. HYPNOTIC [Concomitant]
  8. OMEPRAZOLE [Concomitant]

REACTIONS (2)
  - LUNG NEOPLASM MALIGNANT [None]
  - MALIGNANT NEOPLASM PROGRESSION [None]
